FAERS Safety Report 6823586-6 (Version None)
Quarter: 2010Q3

REPORT INFORMATION
  Report Type: 
  Country: None (occurrence: None)
  Receive Date: 20100708
  Receipt Date: 20060804
  Transmission Date: 20110219
  Serious: Yes (Other)
  Sender: FDA-Public Use
  Company Number: US-PFIZER INC-2006096963

PATIENT
  Sex: Female
  Weight: 84.37 kg

DRUGS (15)
  1. CHANTIX [Suspect]
     Indication: SMOKING CESSATION THERAPY
     Route: 048
     Dates: start: 20060731, end: 20060802
  2. AVELOX [Concomitant]
     Route: 048
     Dates: start: 20060701
  3. CARBAMAZEPINE [Concomitant]
     Route: 048
  4. LIPITOR [Concomitant]
     Route: 048
  5. ASPIRINE [Concomitant]
     Route: 048
  6. CALCIUM WITH VITAMIN D [Concomitant]
     Route: 048
  7. NITROGLYCERIN [Concomitant]
     Route: 065
  8. SINGULAIR [Concomitant]
     Route: 048
  9. NORVASC [Concomitant]
     Route: 048
  10. PREVACID [Concomitant]
     Route: 048
  11. ZYRTEC [Concomitant]
     Route: 048
  12. ADVAIR DISKUS 100/50 [Concomitant]
     Route: 055
  13. ATROVENT [Concomitant]
     Route: 055
  14. ALBUTEROL [Concomitant]
     Route: 055
  15. RELAFEN [Concomitant]
     Route: 048

REACTIONS (3)
  - GASTROINTESTINAL HAEMORRHAGE [None]
  - INSOMNIA [None]
  - NAUSEA [None]
